FAERS Safety Report 18189482 (Version 2)
Quarter: 2020Q3

REPORT INFORMATION
  Report Type: Report from Study
  Country: FR (occurrence: FR)
  Receive Date: 20200824
  Receipt Date: 20200828
  Transmission Date: 20201103
  Serious: Yes (Life-Threatening, Hospitalization)
  Sender: FDA-Public Use
  Company Number: FR-PFIZER INC-2020325565

PATIENT
  Age: 67 Year
  Sex: Male
  Weight: 73 kg

DRUGS (13)
  1. CYTARABINE. [Suspect]
     Active Substance: CYTARABINE
     Indication: ACUTE MYELOID LEUKAEMIA
     Dosage: 376 MG, (PER 24H) CYCLIC
     Dates: start: 20180813
  2. NICARDIPINE [Concomitant]
     Active Substance: NICARDIPINE
     Indication: HYPERTENSION
     Dosage: 30 MG
     Route: 048
     Dates: start: 20180818
  3. RAMIPRIL. [Concomitant]
     Active Substance: RAMIPRIL
     Dosage: 5 MG
     Route: 048
     Dates: start: 20180819, end: 20180824
  4. POSACONAZOLE [Concomitant]
     Active Substance: POSACONAZOLE
     Dosage: 300 MG
     Route: 048
     Dates: start: 20180819, end: 20180824
  5. AMOXICILLINE [AMOXICILLIN] [Concomitant]
     Active Substance: AMOXICILLIN
     Indication: BACTERAEMIA
     Dosage: 3 G
     Route: 042
     Dates: start: 20180818, end: 20180822
  6. PANTOPRAZOLE [Concomitant]
     Active Substance: PANTOPRAZOLE
     Indication: GASTROOESOPHAGEAL REFLUX PROPHYLAXIS
     Dosage: 40 MG
     Route: 042
     Dates: start: 20180818
  7. FUROSEMIDE. [Concomitant]
     Active Substance: FUROSEMIDE
     Dosage: 40 MG
     Route: 048
     Dates: start: 20180819, end: 20180824
  8. ONDANSETRON [Concomitant]
     Active Substance: ONDANSETRON
     Indication: NAUSEA
     Dosage: 8 MG
     Route: 042
     Dates: start: 20180820, end: 20180823
  9. PIPERACILLINE [PIPERACILLIN] [Concomitant]
     Active Substance: PIPERACILLIN
     Dosage: 8 G
     Route: 042
     Dates: start: 20180822, end: 20180824
  10. MYLOTARG [Suspect]
     Active Substance: GEMTUZUMAB OZOGAMICIN
     Indication: ACUTE MYELOID LEUKAEMIA
     Dosage: 5 MG, CYCLIC
     Dates: start: 20180813
  11. TRAMADOL. [Concomitant]
     Active Substance: TRAMADOL
     Dosage: 150 MG
     Route: 048
     Dates: start: 20180822, end: 20180824
  12. URAPIDIL [Concomitant]
     Active Substance: URAPIDIL
     Indication: HYPERTENSION
     Dosage: 120 MG
     Route: 048
     Dates: start: 20180819
  13. LENOGRASTIM [Concomitant]
     Active Substance: LENOGRASTIM
     Dosage: 33.6 MIU
     Route: 042
     Dates: start: 20180821

REACTIONS (2)
  - Thrombocytopenia [Recovered/Resolved with Sequelae]
  - Headache [Recovered/Resolved with Sequelae]

NARRATIVE: CASE EVENT DATE: 20180823
